FAERS Safety Report 9495141 (Version 2)
Quarter: 2013Q4

REPORT INFORMATION
  Report Type: Spontaneous
  Country: PL (occurrence: PL)
  Receive Date: 20130903
  Receipt Date: 20131003
  Transmission Date: 20140711
  Serious: Yes (Death)
  Sender: FDA-Public Use
  Company Number: PL-ACTELION-A-CH2013-87994

PATIENT
  Age: 18 Year
  Sex: Female
  Weight: 45 kg

DRUGS (2)
  1. TRACLEER [Suspect]
     Indication: PULMONARY ARTERIAL HYPERTENSION
     Dosage: 125 MG, BID
     Route: 048
     Dates: start: 20121031, end: 20130829
  2. TRACLEER [Suspect]
     Dosage: 62.5 MG, BID
     Route: 048
     Dates: start: 20121002, end: 20121030

REACTIONS (5)
  - Pulmonary valve replacement [Fatal]
  - Haemorrhage [Fatal]
  - Myocardial infarction [Fatal]
  - Disseminated intravascular coagulation [Fatal]
  - Shock [Fatal]
